FAERS Safety Report 8343637-X (Version None)
Quarter: 2012Q2

REPORT INFORMATION
  Report Type: 
  Country: None (occurrence: None)
  Receive Date: 20120508
  Receipt Date: 20100706
  Transmission Date: 20120825
  Serious: No
  Sender: FDA-Public Use
  Company Number: US-TEVA-2010003695

PATIENT
  Sex: Female

DRUGS (2)
  1. TREANDA [Suspect]
     Indication: WALDENSTROM'S MACROGLOBULINAEMIA
     Route: 042
  2. RITUXAN [Concomitant]
     Indication: WALDENSTROM'S MACROGLOBULINAEMIA

REACTIONS (1)
  - ASPARTATE AMINOTRANSFERASE INCREASED [None]
